FAERS Safety Report 24619194 (Version 1)
Quarter: 2024Q4

REPORT INFORMATION
  Report Type: Spontaneous
  Country: US (occurrence: US)
  Receive Date: 20241114
  Receipt Date: 20241114
  Transmission Date: 20250115
  Serious: Yes (Other)
  Sender: AMGEN
  Company Number: US-AMGEN-USASP2024220148

PATIENT
  Age: 15 Year
  Sex: Male

DRUGS (8)
  1. PREDNISONE [Suspect]
     Active Substance: PREDNISONE
     Indication: Multiple sclerosis
     Dosage: UNK, TAPER
     Route: 065
  2. RITUXIMAB [Suspect]
     Active Substance: RITUXIMAB
     Indication: Multiple sclerosis
     Dosage: 750 MILLIGRAM/SQ. METER
     Route: 065
  3. DEXAMETHASONE [Concomitant]
     Active Substance: DEXAMETHASONE
     Indication: Oropharyngeal discomfort
     Dosage: UNK
  4. METHYLPREDNISOLONE [Concomitant]
     Active Substance: METHYLPREDNISOLONE
     Indication: Multiple sclerosis
     Dosage: 1000 MILLIGRAM, QD
     Route: 040
  5. HUMAN IMMUNOGLOBULIN G [Concomitant]
     Active Substance: HUMAN IMMUNOGLOBULIN G
     Indication: Multiple sclerosis
     Dosage: 2 GRAM PER KILOGRAM
     Route: 040
  6. REMDESIVIR [Concomitant]
     Active Substance: REMDESIVIR
     Indication: COVID-19
     Dosage: UNK, FOR 5 DAYS
  7. CARBIDOPA [Concomitant]
     Active Substance: CARBIDOPA
     Indication: Multiple sclerosis
  8. LEVODOPA [Concomitant]
     Active Substance: LEVODOPA
     Indication: Multiple sclerosis
     Dosage: UNK

REACTIONS (3)
  - Multiple sclerosis [Unknown]
  - Drug effective for unapproved indication [Unknown]
  - Off label use [Unknown]
